FAERS Safety Report 9440762 (Version 2)
Quarter: 2013Q3

REPORT INFORMATION
  Report Type: Report from Study
  Country: CA (occurrence: CA)
  Receive Date: 20130805
  Receipt Date: 20130820
  Transmission Date: 20140515
  Serious: Yes (Hospitalization)
  Sender: FDA-Public Use
  Company Number: CA-SANOFI-AVENTIS-BMS16695355

PATIENT
  Age: 62 Year
  Sex: Female
  Weight: 71 kg

DRUGS (7)
  1. IRBESARTAN [Suspect]
     Indication: PRODUCT USED FOR UNKNOWN INDICATION
     Route: 065
     Dates: start: 20090715
  2. PEGINTERFERON ALFA-2A [Suspect]
     Indication: CHRONIC HEPATITIS C
     Dosage: 1DF=180UG
     Route: 058
     Dates: start: 20120523
  3. RIBAVIRIN [Suspect]
     Indication: CHRONIC HEPATITIS C
     Route: 048
     Dates: start: 20120523
  4. INVESTIGATIONAL DRUG [Suspect]
     Indication: CHRONIC HEPATITIS C
     Route: 048
     Dates: start: 20120523
  5. HYDROCHLOROTHIAZIDE [Suspect]
     Indication: PRODUCT USED FOR UNKNOWN INDICATION
     Route: 065
     Dates: start: 20090715
  6. POTASSIUM [Concomitant]
     Dosage: ORAL.IV ROUTES
  7. ADVIL [Concomitant]
     Dates: start: 20120524

REACTIONS (3)
  - Hypokalaemia [Recovered/Resolved]
  - Syncope [Recovered/Resolved]
  - Concussion [Recovered/Resolved]
